FAERS Safety Report 9403718 (Version 1)
Quarter: 2013Q3

REPORT INFORMATION
  Report Type: Spontaneous
  Country: US (occurrence: None)
  Receive Date: 20130715
  Receipt Date: 20130715
  Transmission Date: 20140515
  Serious: Yes (Other)
  Sender: FDA-Public Use
  Company Number: None

PATIENT
  Age: 24 Year
  Sex: Female
  Weight: 81.8 kg

DRUGS (1)
  1. SERTRALINE [Suspect]
     Dosage: MG EVERY DAY PO
     Route: 048
     Dates: start: 20130618

REACTIONS (2)
  - Chest pain [None]
  - Palpitations [None]
